FAERS Safety Report 21108396 (Version 1)
Quarter: 2022Q3

REPORT INFORMATION
  Report Type: Other
  Country: US (occurrence: None)
  Receive Date: 20220720
  Receipt Date: 20220720
  Transmission Date: 20221027
  Serious: Yes (Hospitalization)
  Sender: FDA-Public Use
  Company Number: US-ROCHE-2534259

PATIENT
  Age: 61 Year
  Sex: Female
  Weight: 74.910 kg

DRUGS (16)
  1. OCREVUS [Suspect]
     Active Substance: OCRELIZUMAB
     Indication: Relapsing-remitting multiple sclerosis
     Dosage: FOLLOWED BY 600 MG ONCE EVERY 6 MONTHS
     Route: 042
     Dates: start: 201906
  2. OCREVUS [Suspect]
     Active Substance: OCRELIZUMAB
     Dosage: FOLLOWED BY 600 MG ONCE EVERY 6 MONTHS
     Route: 042
     Dates: start: 20190801, end: 20200702
  3. KLONOPIN [Suspect]
     Active Substance: CLONAZEPAM
     Indication: Restless legs syndrome
     Route: 048
  4. KLONOPIN [Suspect]
     Active Substance: CLONAZEPAM
     Indication: Anxiety
  5. CELEXA [Concomitant]
     Active Substance: CITALOPRAM HYDROBROMIDE
     Indication: Depression
     Route: 048
  6. ALBUTEROL [Concomitant]
     Active Substance: ALBUTEROL
     Indication: Asthma
     Dosage: 2 PUFF PRN ;ONGOING: YES
  7. BACLOFEN [Concomitant]
     Active Substance: BACLOFEN
     Indication: Multiple sclerosis
     Route: 048
  8. IMITREX [Concomitant]
     Active Substance: SUMATRIPTAN SUCCINATE
     Indication: Migraine
     Route: 048
  9. NEURONTIN [Concomitant]
     Active Substance: GABAPENTIN
     Indication: Multiple sclerosis
     Route: 048
  10. SIMVASTATIN [Concomitant]
     Active Substance: SIMVASTATIN
     Indication: Blood cholesterol
     Route: 048
  11. TOPAMAX [Concomitant]
     Active Substance: TOPIRAMATE
     Indication: Migraine
     Route: 048
  12. TRAZODONE [Concomitant]
     Active Substance: TRAZODONE HYDROCHLORIDE
     Indication: Insomnia
     Route: 048
  13. ZYRTEC [Concomitant]
     Active Substance: CETIRIZINE HYDROCHLORIDE
     Route: 048
  14. LASIX [Concomitant]
     Active Substance: FUROSEMIDE
     Indication: Swelling
  15. POTASSIUM [Concomitant]
     Active Substance: POTASSIUM
     Dosage: TAKEN WITH LASIX
     Route: 048
  16. GABAPENTIN [Concomitant]
     Active Substance: GABAPENTIN
     Indication: Multiple sclerosis
     Route: 048

REACTIONS (9)
  - Throat irritation [Recovered/Resolved]
  - Paraesthesia oral [Recovered/Resolved]
  - Off label use [Unknown]
  - Bronchitis [Recovered/Resolved]
  - Hypoaesthesia [Recovered/Resolved]
  - Nausea [Recovered/Resolved]
  - Headache [Recovered/Resolved]
  - Asthenia [Recovered/Resolved]
  - Laryngeal oedema [Recovered/Resolved]

NARRATIVE: CASE EVENT DATE: 20200101
